FAERS Safety Report 6108153-4 (Version None)
Quarter: 2009Q1

REPORT INFORMATION
  Report Type: 
  Country: None (occurrence: None)
  Receive Date: 20090309
  Receipt Date: 20090224
  Transmission Date: 20090719
  Serious: Yes (Other)
  Sender: FDA-Public Use
  Company Number: GB-ELI_LILLY_AND_COMPANY-GB200902006347

PATIENT
  Age: 8 Year
  Sex: Male
  Weight: 25.4 kg

DRUGS (1)
  1. STRATTERA [Suspect]
     Dosage: 25 MG, UNKNOWN
     Route: 048
     Dates: start: 20080219, end: 20081223

REACTIONS (5)
  - ABNORMAL BEHAVIOUR [None]
  - AGGRESSION [None]
  - ANOREXIA [None]
  - DEPRESSED MOOD [None]
  - SUICIDAL IDEATION [None]
